FAERS Safety Report 9655614 (Version 1)
Quarter: 2013Q4

REPORT INFORMATION
  Report Type: Report from Study
  Country: ZA (occurrence: ZA)
  Receive Date: 20131030
  Receipt Date: 20131030
  Transmission Date: 20140711
  Serious: Yes (Death)
  Sender: FDA-Public Use
  Company Number: ZA-ROCHE-1296307

PATIENT
  Age: 66 Year
  Sex: Male

DRUGS (7)
  1. MIRCERA [Suspect]
     Indication: NEPHROGENIC ANAEMIA
     Route: 058
     Dates: start: 20091006, end: 20100408
  2. MIRCERA [Suspect]
     Route: 058
     Dates: start: 20100408, end: 20110918
  3. MIRCERA [Suspect]
     Route: 058
     Dates: start: 20110918, end: 20130615
  4. MIRCERA [Suspect]
     Route: 058
     Dates: start: 20130615, end: 20130925
  5. PRATSIOL [Concomitant]
  6. AMLOC (SOUTH AFRICA) [Concomitant]
  7. NOVORAPID [Concomitant]

REACTIONS (1)
  - Death [Fatal]
